FAERS Safety Report 17243746 (Version 1)
Quarter: 2020Q1

REPORT INFORMATION
  Report Type: Spontaneous
  Country: US (occurrence: US)
  Receive Date: 20200107
  Receipt Date: 20200107
  Transmission Date: 20200409
  Serious: Yes (Death)
  Sender: FDA-Public Use
  Company Number: US-ROCHE-2310688

PATIENT
  Age: 61 Year
  Sex: Male

DRUGS (1)
  1. ACTIVASE [Suspect]
     Active Substance: ALTEPLASE
     Indication: BASAL GANGLIA STROKE
     Route: 065
     Dates: start: 20190426

REACTIONS (1)
  - Haemorrhagic transformation stroke [Fatal]
